FAERS Safety Report 5788215-1 (Version None)
Quarter: 2008Q2

REPORT INFORMATION
  Report Type: 
  Country: None (occurrence: None)
  Receive Date: 20080620
  Receipt Date: 20080605
  Transmission Date: 20081010
  Serious: Yes (Hospitalization, Disabling)
  Sender: FDA-Public Use
  Company Number: APP200800148

PATIENT
  Age: 42 Year
  Sex: Female
  Weight: 94.3482 kg

DRUGS (8)
  1. SENSORCAINE-MPF WITH EPINEPHRINE (BUPIVACAINE HYDROCHLORIDE) [Suspect]
     Indication: MUSCULOSKELETAL PAIN
     Dosage: SEE IMAGE
     Dates: start: 20030910, end: 20030910
  2. SENSORCAINE-MPF WITH EPINEPHRINE (BUPIVACAINE HYDROCHLORIDE) [Suspect]
     Indication: MUSCULOSKELETAL PAIN
     Dosage: SEE IMAGE
     Dates: start: 20030910, end: 20030910
  3. SENSORCAINE-MPF WITH EPINEPHRINE (BUPIVACAINE HYDROCHLORIDE) [Suspect]
     Indication: MUSCULOSKELETAL PAIN
     Dosage: SEE IMAGE
     Dates: start: 20030910
  4. XYLOCAINE W/ EPINEPHRINE [Suspect]
     Indication: MUSCULOSKELETAL PAIN
     Dosage: 30 ML, RIGHT SHOULDER PRE-OPERATIVE, INJECTION
     Dates: start: 20030910, end: 20030910
  5. BUPIVACAINE HCL [Suspect]
     Indication: MUSCULOSKELETAL PAIN
     Dosage: 5 ML
     Dates: start: 20060301
  6. I-FLOW PAIN PUMP [Concomitant]
     Indication: MUSCULOSKELETAL PAIN
     Dates: start: 20030703
  7. DONJOY PAINBUSTER [Concomitant]
     Indication: MUSCULOSKELETAL PAIN
     Dates: start: 20030910
  8. ANCEF [Concomitant]

REACTIONS (12)
  - BURSITIS [None]
  - CHONDROLYSIS [None]
  - HYPOAESTHESIA [None]
  - MOVEMENT DISORDER [None]
  - MUSCULOSKELETAL DISCOMFORT [None]
  - MUSCULOSKELETAL PAIN [None]
  - NO THERAPEUTIC RESPONSE [None]
  - OSTEOARTHRITIS [None]
  - PARAESTHESIA [None]
  - REPETITIVE STRAIN INJURY [None]
  - ROTATOR CUFF SYNDROME [None]
  - TENDON RUPTURE [None]
